FAERS Safety Report 18189031 (Version 6)
Quarter: 2023Q2

REPORT INFORMATION
  Report Type: Spontaneous
  Country: US (occurrence: US)
  Receive Date: 20200824
  Receipt Date: 20230606
  Transmission Date: 20230721
  Serious: Yes (Other)
  Sender: FDA-Public Use
  Company Number: US-JNJFOC-20200821095

PATIENT
  Age: 29 Year
  Sex: Female

DRUGS (8)
  1. ELMIRON [Suspect]
     Active Substance: PENTOSAN POLYSULFATE SODIUM
     Indication: Cystitis interstitial
     Route: 048
     Dates: start: 1998
  2. ELMIRON [Suspect]
     Active Substance: PENTOSAN POLYSULFATE SODIUM
     Dosage: 100 MG CAPSULE, TAKE 2 CAPSULES BY MOUTH TWICE DAILY.
     Route: 048
  3. ELMIRON [Suspect]
     Active Substance: PENTOSAN POLYSULFATE SODIUM
     Dosage: 300 MG OR 400 MG PER DAY
     Route: 048
     Dates: start: 20011026, end: 2011
  4. ELMIRON [Suspect]
     Active Substance: PENTOSAN POLYSULFATE SODIUM
     Dosage: 400 MG PER DAY
     Route: 048
     Dates: start: 20110303, end: 20200129
  5. ELMIRON [Suspect]
     Active Substance: PENTOSAN POLYSULFATE SODIUM
     Route: 048
     Dates: end: 2020
  6. CLONAZEPAM [Concomitant]
     Active Substance: CLONAZEPAM
     Indication: Cystitis interstitial
     Dates: start: 2000
  7. HYDROXYZINE [Concomitant]
     Active Substance: HYDROXYZINE HYDROCHLORIDE
     Indication: Cystitis interstitial
     Dates: start: 2000
  8. HYDROCODONE [Concomitant]
     Active Substance: HYDROCODONE
     Indication: Cystitis interstitial
     Dates: start: 2000

REACTIONS (3)
  - Maculopathy [Unknown]
  - Liver function test increased [Unknown]
  - Off label use [Unknown]

NARRATIVE: CASE EVENT DATE: 20041201
